FAERS Safety Report 4604886-7 (Version None)
Quarter: 2005Q1

REPORT INFORMATION
  Report Type: 
  Country: None (occurrence: None)
  Receive Date: 20050310
  Receipt Date: 20050310
  Transmission Date: 20050727
  Serious: Yes (Other)
  Sender: FDA-Public Use
  Company Number: None

PATIENT
  Age: 25 Year
  Sex: Male
  Weight: 81.6475 kg

DRUGS (1)
  1. VANCOMYCIN [Suspect]
     Indication: OSTEOMYELITIS
     Dosage: 1500 MG DAILY INTRAVENOUS
     Route: 042
     Dates: start: 20050305, end: 20050305

REACTIONS (2)
  - ANAPHYLACTIC REACTION [None]
  - REFUSAL OF TREATMENT BY PATIENT [None]
